FAERS Safety Report 18367010 (Version 2)
Quarter: 2020Q4

REPORT INFORMATION
  Report Type: Spontaneous
  Country: US (occurrence: US)
  Receive Date: 20201009
  Receipt Date: 20201105
  Transmission Date: 20210114
  Serious: Yes (Hospitalization, Other)
  Sender: FDA-Public Use
  Company Number: US-ASTRAZENECA-2020SF27970

PATIENT
  Age: 21690 Day
  Sex: Male
  Weight: 88.5 kg

DRUGS (50)
  1. GLIPIZIDE. [Concomitant]
     Active Substance: GLIPIZIDE
  2. ASPIRIN. [Concomitant]
     Active Substance: ASPIRIN
  3. MULTIVITAMINS [Concomitant]
     Active Substance: VITAMINS
  4. CIALIS [Concomitant]
     Active Substance: TADALAFIL
  5. FAMOTIDINE. [Concomitant]
     Active Substance: FAMOTIDINE
  6. NOVOLOG [Concomitant]
     Active Substance: INSULIN ASPART
  7. TOPAMIDOL [Concomitant]
  8. ONDANSETRON [Concomitant]
     Active Substance: ONDANSETRON
  9. METFORMIN [Concomitant]
     Active Substance: METFORMIN HYDROCHLORIDE
  10. VIAGRA [Concomitant]
     Active Substance: SILDENAFIL CITRATE
  11. MOVANTIK [Concomitant]
     Active Substance: NALOXEGOL OXALATE
  12. MORPHINE SULPHATE [Concomitant]
     Active Substance: MORPHINE SULFATE
  13. SODIUM CHLORIDE. [Concomitant]
     Active Substance: SODIUM CHLORIDE
  14. MUPIROCIN. [Concomitant]
     Active Substance: MUPIROCIN
  15. FARXIGA [Suspect]
     Active Substance: DAPAGLIFLOZIN PROPANEDIOL
     Indication: WEIGHT DECREASED
     Route: 048
     Dates: start: 20140919, end: 201708
  16. GLARGINE INSULIN [Concomitant]
     Active Substance: INSULIN GLARGINE
  17. LISINOPRIL. [Concomitant]
     Active Substance: LISINOPRIL
  18. HYDROCODONE [Concomitant]
     Active Substance: HYDROCODONE
  19. TEMAZEPAM. [Concomitant]
     Active Substance: TEMAZEPAM
  20. CRESTOR [Concomitant]
     Active Substance: ROSUVASTATIN CALCIUM
  21. SIMVASTATIN. [Concomitant]
     Active Substance: SIMVASTATIN
  22. VITAMIN D [Concomitant]
     Active Substance: VITAMIN D NOS
  23. ADVIL [Concomitant]
     Active Substance: IBUPROFEN
  24. FARXIGA [Suspect]
     Active Substance: DAPAGLIFLOZIN PROPANEDIOL
     Indication: TYPE 2 DIABETES MELLITUS
     Route: 048
     Dates: start: 20140919, end: 201708
  25. BYDUREON [Concomitant]
     Active Substance: EXENATIDE
  26. SERTRALINE [Concomitant]
     Active Substance: SERTRALINE HYDROCHLORIDE
  27. ATORVASTATIN [Concomitant]
     Active Substance: ATORVASTATIN
  28. FUROSEMIDE. [Concomitant]
     Active Substance: FUROSEMIDE
  29. ACTOS [Concomitant]
     Active Substance: PIOGLITAZONE HYDROCHLORIDE
  30. TANZEUM [Concomitant]
     Active Substance: ALBIGLUTIDE
  31. CLOPIDOGREL BISULFATE. [Concomitant]
     Active Substance: CLOPIDOGREL BISULFATE
  32. KOMBIGLYZE XR [Concomitant]
     Active Substance: METFORMIN HYDROCHLORIDE\SAXAGLIPTIN HYDROCHLORIDE
  33. PROZAC [Concomitant]
     Active Substance: FLUOXETINE HYDROCHLORIDE
  34. VENLAFAXINE [Concomitant]
     Active Substance: VENLAFAXINE HYDROCHLORIDE
  35. NITROGLYCERIN. [Concomitant]
     Active Substance: NITROGLYCERIN
  36. ACETAMINOPHEN. [Concomitant]
     Active Substance: ACETAMINOPHEN
  37. MAGNESIUM OXIDE. [Concomitant]
     Active Substance: MAGNESIUM OXIDE
  38. METOPROLOL SUCCINATE. [Concomitant]
     Active Substance: METOPROLOL SUCCINATE
  39. AMLODIPINE [Concomitant]
     Active Substance: AMLODIPINE BESYLATE
  40. CATAPRES [Concomitant]
     Active Substance: CLONIDINE HYDROCHLORIDE
  41. FLEXERIL [Concomitant]
     Active Substance: CYCLOBENZAPRINE HYDROCHLORIDE
  42. LEXAPRO [Concomitant]
     Active Substance: ESCITALOPRAM OXALATE
  43. DEXTROSE. [Concomitant]
     Active Substance: DEXTROSE
  44. DULOXETINE. [Concomitant]
     Active Substance: DULOXETINE
  45. AUGMENTIN [Concomitant]
     Active Substance: AMOXICILLIN\CLAVULANATE POTASSIUM
  46. FARXIGA [Suspect]
     Active Substance: DAPAGLIFLOZIN PROPANEDIOL
     Indication: BLOOD PRESSURE DECREASED
     Route: 048
     Dates: start: 20140919, end: 201708
  47. HYDROCODONE-ACETAMINOPHEN [Concomitant]
     Active Substance: ACETAMINOPHEN\HYDROCODONE
  48. EFFEXOR [Concomitant]
     Active Substance: VENLAFAXINE HYDROCHLORIDE
  49. DIFICID [Concomitant]
     Active Substance: FIDAXOMICIN
  50. PHOSPHORUS [Concomitant]
     Active Substance: PHOSPHORUS

REACTIONS (11)
  - Fournier^s gangrene [Unknown]
  - Acute kidney injury [Unknown]
  - Necrotising fasciitis [Unknown]
  - Renal failure [Unknown]
  - Perineal cellulitis [Unknown]
  - Peritonitis [Unknown]
  - Chronic kidney disease [Unknown]
  - Perineal abscess [Unknown]
  - Scrotal abscess [Unknown]
  - End stage renal disease [Unknown]
  - Hyperparathyroidism secondary [Unknown]

NARRATIVE: CASE EVENT DATE: 20150624
